FAERS Safety Report 4704086-6 (Version None)
Quarter: 2005Q2

REPORT INFORMATION
  Report Type: 
  Country: None (occurrence: None)
  Receive Date: 20050629
  Receipt Date: 20050614
  Transmission Date: 20051028
  Serious: No
  Sender: FDA-Public Use
  Company Number: 11577

PATIENT
  Sex: Male

DRUGS (10)
  1. DOXORUBICIN HCL [Suspect]
     Indication: NON-HODGKIN'S LYMPHOMA
     Dosage: 600 MG TOTAL
  2. BLEOMYCIN [Suspect]
     Indication: NON-HODGKIN'S LYMPHOMA
     Dosage: 60 MG/M2 TOTAL
  3. EPIRUBICIN [Suspect]
     Indication: LYMPHOMA
  4. VINCRISTINE [Suspect]
     Indication: NON-HODGKIN'S LYMPHOMA
     Dosage: 7 MG/M2 TOTAL
  5. METHOTREXATE [Suspect]
     Indication: NON-HODGKIN'S LYMPHOMA
     Dosage: 1100 MG/M2 TOTAL
  6. MITOXANTRONE [Suspect]
     Indication: NON-HODGKIN'S LYMPHOMA
     Dosage: 30 MG/M2 TOTAL
  7. ETOPOSIDE [Suspect]
     Indication: NON-HODGKIN'S LYMPHOMA
     Dosage: 600 MG/M2 TOTAL
  8. TENIPOSIDE [Suspect]
     Indication: NON-HODGKIN'S LYMPHOMA
     Dosage: 600 MG/M2 TOTAL
  9. CYCLOPHOSPHAMIDE [Suspect]
     Indication: NON-HODGKIN'S LYMPHOMA
     Dosage: 3600 MG/M2 TOTAL
  10. IFOSFAMIDE [Suspect]
     Indication: NON-HODGKIN'S LYMPHOMA
     Dosage: 4000 MG/M2 TOTAL

REACTIONS (1)
  - ACUTE PROMYELOCYTIC LEUKAEMIA [None]
